FAERS Safety Report 4606491-5 (Version None)
Quarter: 2005Q2

REPORT INFORMATION
  Report Type: 
  Country: None (occurrence: None)
  Receive Date: 20050218
  Receipt Date: 20040506
  Transmission Date: 20051028
  Serious: Yes (Hospitalization, Other)
  Sender: FDA-Public Use
  Company Number: 2004208933US

PATIENT
  Age: 19 Year
  Sex: Female

DRUGS (5)
  1. ATGAM [Suspect]
     Indication: APLASTIC ANAEMIA
     Dosage: SEE IMAGE
     Route: 042
     Dates: start: 19920101, end: 19920101
  2. ATGAM [Suspect]
     Indication: APLASTIC ANAEMIA
     Dosage: SEE IMAGE
     Route: 042
     Dates: start: 19980101, end: 19980101
  3. ATGAM [Suspect]
     Indication: APLASTIC ANAEMIA
     Dosage: SEE IMAGE
     Route: 042
     Dates: start: 19990701, end: 19990701
  4. XX [Concomitant]
  5. XX [Concomitant]

REACTIONS (2)
  - APLASIA PURE RED CELL [None]
  - URTICARIA [None]
